FAERS Safety Report 7000933-6 (Version None)
Quarter: 2010Q3

REPORT INFORMATION
  Report Type: 
  Country: None (occurrence: None)
  Receive Date: 20100920
  Receipt Date: 20100914
  Transmission Date: 20110219
  Serious: Yes (Other)
  Sender: FDA-Public Use
  Company Number: PHHY2010JP61154

PATIENT
  Sex: Female

DRUGS (4)
  1. COMTAN CMT+TAB [Suspect]
     Indication: DRUG EFFECT DECREASED
     Dosage: 300 MG DAILY
     Route: 048
     Dates: start: 20080808
  2. CARBIDOPA AND LEVODOPA [Concomitant]
     Indication: PARKINSON'S DISEASE
     Dosage: 450MG
     Dates: start: 19960101
  3. PRAMIPEXOLE DIHYDROCHLORIDE [Concomitant]
     Indication: PARKINSON'S DISEASE
     Dosage: 2 MG
     Route: 048
     Dates: start: 20070803
  4. ALMARL [Concomitant]
     Dosage: 15 MG
     Route: 048
     Dates: start: 19970726

REACTIONS (2)
  - HALLUCINATION [None]
  - SENSORY DISTURBANCE [None]
